FAERS Safety Report 19972162 (Version 1)
Quarter: 2021Q4

REPORT INFORMATION
  Report Type: Spontaneous
  Country: US (occurrence: US)
  Receive Date: 20211020
  Receipt Date: 20211020
  Transmission Date: 20220303
  Serious: Yes (Hospitalization)
  Sender: FDA-Public Use
  Company Number: US-INCYTE CORPORATION-2021IN009430

PATIENT

DRUGS (1)
  1. JAKAFI [Suspect]
     Active Substance: RUXOLITINIB
     Indication: Stem cell transplant
     Dosage: 10 MILLIGRAM, BID
     Route: 048
     Dates: start: 202106

REACTIONS (3)
  - Viral infection [Unknown]
  - Gait disturbance [Unknown]
  - Off label use [Unknown]

NARRATIVE: CASE EVENT DATE: 20210601
